FAERS Safety Report 4873395-2 (Version None)
Quarter: 2005Q4

REPORT INFORMATION
  Report Type: 
  Country: None (occurrence: None)
  Receive Date: 20051201
  Receipt Date: 20050708
  Transmission Date: 20060501
  Serious: No
  Sender: FDA-Public Use
  Company Number: 2005PV000303

PATIENT
  Age: 64 Year
  Sex: Female

DRUGS (16)
  1. BYETTA [Suspect]
     Indication: DIABETES MELLITUS
     Dosage: 5 MCG;BID;SC
     Route: 058
     Dates: start: 20050701
  2. LANTUS [Concomitant]
  3. NOVOLIN N [Concomitant]
  4. ZOCOR [Concomitant]
  5. LISINOPRIL [Concomitant]
  6. ACCOLATE [Concomitant]
  7. NEXIUM [Concomitant]
  8. ACTOS [Concomitant]
  9. BUMEX [Concomitant]
  10. COREG [Concomitant]
  11. FOLIC ACID [Concomitant]
  12. SORIATANE [Concomitant]
  13. ASPIRIN [Concomitant]
  14. LORATADINE [Concomitant]
  15. OYSTER SHELL CALCIUM [Concomitant]
  16. TYLENOL (CAPLET) [Concomitant]

REACTIONS (2)
  - DECREASED APPETITE [None]
  - EARLY SATIETY [None]
